FAERS Safety Report 15785292 (Version 1)
Quarter: 2019Q1

REPORT INFORMATION
  Report Type: Spontaneous
  Country: US (occurrence: US)
  Receive Date: 20190102
  Receipt Date: 20190102
  Transmission Date: 20190417
  Serious: Yes (Death)
  Sender: FDA-Public Use
  Company Number: None

PATIENT
  Age: 61 Year
  Sex: Male

DRUGS (8)
  1. CALCIUM 500 MG [Concomitant]
  2. TAMSULOSIN 0.4 MG [Concomitant]
     Active Substance: TAMSULOSIN
  3. SERTRALINE [Concomitant]
     Active Substance: SERTRALINE HYDROCHLORIDE
  4. ZYTIGA [Suspect]
     Active Substance: ABIRATERONE ACETATE
     Indication: PROSTATE CANCER
     Route: 048
     Dates: start: 20180912, end: 20181226
  5. PERCOCET 5/325 MG [Concomitant]
  6. ALENDRONATE 70 MG [Concomitant]
     Active Substance: ALENDRONATE SODIUM
  7. ASPIRIN 81 MG [Concomitant]
     Active Substance: ASPIRIN
  8. LORAZEPAM 2 MG [Concomitant]
     Active Substance: LORAZEPAM

REACTIONS (1)
  - Death [None]

NARRATIVE: CASE EVENT DATE: 20181226
